FAERS Safety Report 8889185 (Version 1)
Quarter: 2012Q4

REPORT INFORMATION
  Report Type: 
  Country: JP (occurrence: JP)
  Receive Date: 20121106
  Receipt Date: 20121106
  Transmission Date: 20130627
  Serious: Yes (Other)
  Sender: FDA-Public Use
  Company Number: JP-ABBOTT-12P-087-1004307-00

PATIENT
  Age: 56 Year
  Sex: Female

DRUGS (3)
  1. CLARITHROMYCIN [Suspect]
     Dosage: 1 Card (0.5 Card, 2 in 1 D)
     Route: 048
     Dates: start: 20120810, end: 20120816
  2. AMOXICILLIN [Suspect]
     Indication: HELICOBACTER INFECTION
     Dosage: 1 Card (0.5 Card, 2 in 1 D)
     Route: 048
     Dates: start: 20120810, end: 20120816
  3. LANSOPRAZOLE [Suspect]
     Indication: HELICOBACTER INFECTION
     Dosage: 1 Card (0.5 Card, 2 in 1 D)
     Dates: start: 20120810, end: 20120816

REACTIONS (1)
  - Drug eruption [Recovering/Resolving]
